FAERS Safety Report 6723803-7 (Version None)
Quarter: 2010Q2

REPORT INFORMATION
  Report Type: 
  Country: None (occurrence: None)
  Receive Date: 20100513
  Receipt Date: 20100218
  Transmission Date: 20101027
  Serious: No
  Sender: FDA-Public Use
  Company Number: A0843022A

PATIENT
  Age: 51 Year
  Sex: Female
  Weight: 90.9 kg

DRUGS (2)
  1. TREXIMET [Suspect]
     Indication: MIGRAINE
     Dosage: 1TAB SINGLE DOSE
     Route: 048
  2. OTHER MEDICATIONS [Concomitant]

REACTIONS (2)
  - BLOOD PRESSURE INCREASED [None]
  - TACHYCARDIA [None]
